FAERS Safety Report 9334224 (Version 1)
Quarter: 2013Q2

REPORT INFORMATION
  Report Type: Spontaneous
  Country: US (occurrence: US)
  Receive Date: 20130606
  Receipt Date: 20130606
  Transmission Date: 20140414
  Serious: No
  Sender: FDA-Public Use
  Company Number: US-AMGEN-USASP2013019413

PATIENT
  Age: 63 Year
  Sex: Female
  Weight: 52.27 kg

DRUGS (5)
  1. PROLIA [Suspect]
     Indication: OSTEOPOROSIS POSTMENOPAUSAL
     Dosage: UNK
     Dates: start: 20130122
  2. LIPITOR [Concomitant]
  3. BAYER ASPIRIN [Concomitant]
  4. DULCOLAX                           /00064401/ [Concomitant]
  5. LISINOPRIL [Concomitant]

REACTIONS (2)
  - Urine analysis abnormal [Unknown]
  - Weight increased [Not Recovered/Not Resolved]
